FAERS Safety Report 5284080-X (Version None)
Quarter: 2007Q1

REPORT INFORMATION
  Report Type: 
  Country: None (occurrence: None)
  Receive Date: 20070327
  Receipt Date: 20070313
  Transmission Date: 20070707
  Serious: Yes (Hospitalization)
  Sender: FDA-Public Use
  Company Number: 2007-155827-NL

PATIENT
  Age: 24 Year
  Sex: Female
  Weight: 56 kg

DRUGS (1)
  1. NUVARING [Suspect]
     Indication: CONTRACEPTION
     Dosage: NI VAGINAL, 3 WKS IN, 1 WK OUT
     Route: 067
     Dates: start: 20070122

REACTIONS (4)
  - NAUSEA [None]
  - SALPINGITIS [None]
  - VOMITING [None]
  - VULVOVAGINAL MYCOTIC INFECTION [None]
